FAERS Safety Report 19350807 (Version 1)
Quarter: 2021Q2

REPORT INFORMATION
  Report Type: Spontaneous
  Country: US (occurrence: US)
  Receive Date: 20210531
  Receipt Date: 20210531
  Transmission Date: 20210717
  Serious: Yes (Other)
  Sender: FDA-Public Use
  Company Number: US-AMGEN-USASP2021081220

PATIENT
  Sex: Female

DRUGS (2)
  1. PROLIA [Suspect]
     Active Substance: DENOSUMAB
     Indication: OSTEOPOROSIS POSTMENOPAUSAL
     Dosage: UNK UNK, Q12MO
     Route: 065
  2. PROLIA [Suspect]
     Active Substance: DENOSUMAB
     Dosage: UNK UNK, Q6MO
     Route: 065

REACTIONS (8)
  - Breast enlargement [Unknown]
  - Renal disorder [Unknown]
  - Off label use [Unknown]
  - Spinal compression fracture [Unknown]
  - Device physical property issue [Unknown]
  - Hypotension [Unknown]
  - Arthralgia [Unknown]
  - Myalgia [Unknown]
